FAERS Safety Report 13978878 (Version 6)
Quarter: 2018Q2

REPORT INFORMATION
  Report Type: Spontaneous
  Country: US (occurrence: US)
  Receive Date: 20170914
  Receipt Date: 20180409
  Transmission Date: 20180711
  Serious: Yes (Other)
  Sender: FDA-Public Use
  Company Number: US-ASTELLAS-2017US034790

PATIENT
  Sex: Male

DRUGS (3)
  1. XTANDI [Suspect]
     Active Substance: ENZALUTAMIDE
     Route: 048
  2. XTANDI [Suspect]
     Active Substance: ENZALUTAMIDE
     Route: 048
     Dates: end: 201803
  3. XTANDI [Suspect]
     Active Substance: ENZALUTAMIDE
     Indication: HORMONE-REFRACTORY PROSTATE CANCER
     Route: 048
     Dates: start: 20170821

REACTIONS (17)
  - Bone pain [Recovered/Resolved]
  - Oropharyngeal pain [Recovering/Resolving]
  - Platelet count increased [Unknown]
  - Myalgia [Not Recovered/Not Resolved]
  - Somnolence [Unknown]
  - Fatigue [Not Recovered/Not Resolved]
  - Headache [Unknown]
  - Haemorrhage [Unknown]
  - Pain [Not Recovered/Not Resolved]
  - Hot flush [Unknown]
  - Epistaxis [Unknown]
  - Platelet count decreased [Unknown]
  - Tremor [Not Recovered/Not Resolved]
  - Sinusitis [Recovering/Resolving]
  - Asthenia [Not Recovered/Not Resolved]
  - Haemoglobin increased [Unknown]
  - Prostatic specific antigen increased [Unknown]
